FAERS Safety Report 13658639 (Version 1)
Quarter: 2017Q2

REPORT INFORMATION
  Report Type: Spontaneous
  Country: US (occurrence: US)
  Receive Date: 20170615
  Receipt Date: 20170615
  Transmission Date: 20170830
  Serious: Yes (Hospitalization, Other)
  Sender: FDA-Public Use
  Company Number: None

PATIENT
  Age: 71 Year
  Sex: Female
  Weight: 49.5 kg

DRUGS (4)
  1. SPIVIRA [Concomitant]
  2. ALENDRONATE 70 [Suspect]
     Active Substance: ALENDRONATE SODIUM
     Indication: OSTEOPOROSIS
     Dosage: ?          QUANTITY:1 TABLET(S);OTHER FREQUENCY:WEEKLY;?
     Route: 048
     Dates: start: 20140507, end: 20170504
  3. CARDEVILOL [Concomitant]
  4. ENALIPRIL [Concomitant]

REACTIONS (1)
  - Femur fracture [None]

NARRATIVE: CASE EVENT DATE: 20170505
